FAERS Safety Report 10005010 (Version 1)
Quarter: 2014Q1

REPORT INFORMATION
  Report Type: Spontaneous
  Country: US (occurrence: US)
  Receive Date: 20140312
  Receipt Date: 20140312
  Transmission Date: 20141002
  Serious: No
  Sender: FDA-Public Use
  Company Number: US-INCYTE CORPORATION-2013IN003120

PATIENT
  Age: 74 Year
  Sex: Male

DRUGS (5)
  1. JAKAFI [Suspect]
     Indication: MYELOFIBROSIS
     Dosage: 20 MG, BID
     Route: 065
     Dates: start: 20130808, end: 2013
  2. ATENOLOL [Concomitant]
  3. LASIX                              /00032601/ [Concomitant]
  4. XANAX [Concomitant]
  5. POTASSIUM [Concomitant]

REACTIONS (1)
  - Pneumonia [Unknown]
